FAERS Safety Report 5814927-7 (Version None)
Quarter: 2008Q3

REPORT INFORMATION
  Report Type: 
  Country: None (occurrence: None)
  Receive Date: 20080718
  Receipt Date: 20080711
  Transmission Date: 20090109
  Serious: Yes (Other)
  Sender: FDA-Public Use
  Company Number: PHHY2008CA06658

PATIENT
  Sex: Male

DRUGS (8)
  1. EXELON [Suspect]
     Indication: DEMENTIA ALZHEIMER'S TYPE
     Dosage: 3 MG, BID
     Route: 048
     Dates: start: 20070625, end: 20070704
  2. ASPIRIN [Concomitant]
     Dosage: 80 MG, QD
  3. DOCUSATE [Concomitant]
  4. MULTIVIT [Concomitant]
  5. CALCIUM [Concomitant]
     Dosage: 500 MG, BID
  6. METFORMIN HCL [Concomitant]
     Dosage: 500 MG, BID
  7. GLYBURIDE [Concomitant]
     Dosage: 2.5 MG, UNK
  8. SINEMET [Concomitant]
     Dosage: 100/25 MG, QID

REACTIONS (5)
  - BALANCE DISORDER [None]
  - DRUG INTOLERANCE [None]
  - FALL [None]
  - PARKINSON'S DISEASE [None]
  - VOMITING [None]
